FAERS Safety Report 20101537 (Version 1)
Quarter: 2021Q4

REPORT INFORMATION
  Report Type: Spontaneous
  Country: CO (occurrence: CO)
  Receive Date: 20211123
  Receipt Date: 20211123
  Transmission Date: 20220303
  Serious: Yes (Hospitalization, Other)
  Sender: FDA-Public Use
  Company Number: CO-AMGEN-COLSP2021181073

PATIENT
  Age: 66 Year
  Sex: Female
  Weight: 76 kg

DRUGS (8)
  1. MVASI [Suspect]
     Active Substance: BEVACIZUMAB-AWWB
     Indication: Uterine polyp
     Dosage: 100 MILLIGRAM
     Route: 065
     Dates: start: 20211028
  2. FOSAPREPITANT [Concomitant]
     Active Substance: FOSAPREPITANT
     Dosage: 150 MILLIGRAM/10ML SUN LNY
  3. DEXAMETHASONE PHOSPHATE [Concomitant]
     Active Substance: DEXAMETHASONE PHOSPHATE
     Dosage: 8 MILLIGRAM/2M L SOL I NY AMP
  4. DIPHENHYDRAMINE HYDROCHLORIDE [Concomitant]
     Active Substance: DIPHENHYDRAMINE HYDROCHLORIDE
     Dosage: 10 MILLIGRAM/ML SUNINY:
  5. ONDANSETRON [Concomitant]
     Active Substance: ONDANSETRON
     Dosage: 4 MILLIGRAM
  6. CARBOPLATIN [Concomitant]
     Active Substance: CARBOPLATIN
     Dosage: 450 MILLIGRAM/45ML SUN LNY
  7. PACLITAXEL [Concomitant]
     Active Substance: PACLITAXEL
     Dosage: SOL INY
  8. PEGFILGRASTIM [Concomitant]
     Active Substance: PEGFILGRASTIM
     Dosage: 6 MILLIGRAM/0.6ML SOL LNY

REACTIONS (3)
  - Ascites [Recovered/Resolved]
  - Arthralgia [Not Recovered/Not Resolved]
  - Off label use [Unknown]

NARRATIVE: CASE EVENT DATE: 20211028
